FAERS Safety Report 16258862 (Version 1)
Quarter: 2019Q2

REPORT INFORMATION
  Report Type: Spontaneous
  Country: RU (occurrence: RU)
  Receive Date: 20190501
  Receipt Date: 20190501
  Transmission Date: 20190711
  Serious: Yes (Death)
  Sender: FDA-Public Use
  Company Number: RU-ROCHE-2307886

PATIENT
  Age: 37 Year
  Sex: Female
  Weight: 110 kg

DRUGS (2)
  1. CELLCEPT [Suspect]
     Active Substance: MYCOPHENOLATE MOFETIL\MYCOPHENOLATE MOFETIL HYDROCHLORIDE
     Indication: SYSTEMIC LUPUS ERYTHEMATOSUS
     Dosage: SINGLE DOSE IS 50 MG / 16 MG, DAILY DOSE IS 100 MG / UNKNOWN MG
     Route: 048
     Dates: start: 20130205, end: 20181221
  2. METHYLPREDNISOLONE. [Suspect]
     Active Substance: METHYLPREDNISOLONE
     Indication: SYSTEMIC LUPUS ERYTHEMATOSUS
     Dosage: SINGLE DOSE IS 50 MG / 16 MG, DAILY DOSE IS 100 MG / UNKNOWN MG
     Route: 048
     Dates: start: 20130205, end: 20181221

REACTIONS (4)
  - Sepsis [Fatal]
  - Skin atrophy [Fatal]
  - Skin infection [Fatal]
  - Acquired immunodeficiency syndrome [Fatal]

NARRATIVE: CASE EVENT DATE: 20181205
